FAERS Safety Report 18310930 (Version 1)
Quarter: 2020Q3

REPORT INFORMATION
  Report Type: Other
  Country: BR (occurrence: BR)
  Receive Date: 20200925
  Receipt Date: 20200925
  Transmission Date: 20201103
  Serious: Yes (Other)
  Sender: FDA-Public Use
  Company Number: BR-ROCHE-2580213

PATIENT
  Age: 46 Year
  Sex: Female

DRUGS (4)
  1. OCREVUS [Suspect]
     Active Substance: OCRELIZUMAB
     Indication: MULTIPLE SCLEROSIS
     Route: 065
     Dates: start: 20190708
  2. OCREVUS [Suspect]
     Active Substance: OCRELIZUMAB
     Route: 065
     Dates: start: 20191030
  3. ALENDRONIC [Concomitant]
     Active Substance: ALENDRONIC ACID
     Indication: BONE DISORDER
  4. OCREVUS [Suspect]
     Active Substance: OCRELIZUMAB
     Dosage: 3RD INFUSION
     Route: 065
     Dates: start: 20200311

REACTIONS (6)
  - Arthralgia [Recovered/Resolved]
  - Shock [Recovered/Resolved]
  - Hypersensitivity [Recovered/Resolved]
  - Throat irritation [Recovered/Resolved]
  - Ear pruritus [Recovered/Resolved]
  - Dyskinesia [Recovered/Resolved]

NARRATIVE: CASE EVENT DATE: 20200311
